FAERS Safety Report 11257698 (Version 1)
Quarter: 2015Q3

REPORT INFORMATION
  Report Type: Spontaneous
  Country: ES (occurrence: ES)
  Receive Date: 20150710
  Receipt Date: 20150710
  Transmission Date: 20151125
  Serious: Yes (Hospitalization)
  Sender: FDA-Public Use
  Company Number: ES-ROCHE-1604061

PATIENT
  Sex: Female

DRUGS (1)
  1. ANTALGIN (SPAIN) [Suspect]
     Active Substance: NAPROXEN SODIUM
     Indication: PRODUCT USED FOR UNKNOWN INDICATION
     Route: 048
     Dates: start: 20150129, end: 20150504

REACTIONS (1)
  - Iron deficiency anaemia [Recovering/Resolving]
